FAERS Safety Report 8050510-3 (Version None)
Quarter: 2012Q1

REPORT INFORMATION
  Report Type: 
  Country: None (occurrence: None)
  Receive Date: 20120117
  Receipt Date: 20120110
  Transmission Date: 20120608
  Serious: Yes (Other)
  Sender: FDA-Public Use
  Company Number: US-US-EMD SERONO, INC.-7106510

PATIENT
  Sex: Male

DRUGS (4)
  1. REBIF [Suspect]
     Indication: MULTIPLE SCLEROSIS
     Route: 058
     Dates: start: 20111121
  2. FISH OIL [Concomitant]
  3. IBUPROFEN [Concomitant]
     Indication: PREMEDICATION
  4. VITAMIN D [Concomitant]

REACTIONS (6)
  - CARDITIS [None]
  - PNEUMONITIS [None]
  - VISUAL IMPAIRMENT [None]
  - INFLUENZA [None]
  - PANIC ATTACK [None]
  - VERTIGO [None]
